FAERS Safety Report 4866758-2 (Version None)
Quarter: 2005Q4

REPORT INFORMATION
  Report Type: 
  Country: None (occurrence: None)
  Receive Date: 20051221
  Receipt Date: 20051209
  Transmission Date: 20060501
  Serious: Yes (Hospitalization, Other)
  Sender: FDA-Public Use
  Company Number: 2005163557

PATIENT
  Age: 54 Year
  Sex: Male
  Weight: 70 kg

DRUGS (3)
  1. CELEBREX [Suspect]
     Indication: PAIN IN EXTREMITY
     Dosage: 200 MG (200 MG, 1 IN 1 D), ORAL
     Route: 048
     Dates: start: 20041025
  2. VALORON N (NALOXONE, TILIDINE) [Concomitant]
  3. PREGABALIN (PREGABALIN) [Concomitant]

REACTIONS (2)
  - FACIAL PARESIS [None]
  - IMPAIRED WORK ABILITY [None]
